FAERS Safety Report 25640937 (Version 2)
Quarter: 2025Q3

REPORT INFORMATION
  Report Type: Report from Study
  Country: US (occurrence: US)
  Receive Date: 20250804
  Receipt Date: 20250826
  Transmission Date: 20251021
  Serious: Yes (Hospitalization)
  Sender: BAYER HEALTHCARE PHARMACEUTICALS INC.
  Company Number: US-BAYER-2025A080704

PATIENT
  Age: 66 Year
  Sex: Male

DRUGS (3)
  1. NUBEQA [Suspect]
     Active Substance: DAROLUTAMIDE
     Indication: Product used for unknown indication
  2. NUBEQA [Suspect]
     Active Substance: DAROLUTAMIDE
     Indication: Product used for unknown indication
  3. ORGOVYX [Concomitant]
     Active Substance: RELUGOLIX
     Indication: Prostate cancer
     Dosage: 120 MG, QD
     Dates: start: 20231216

REACTIONS (7)
  - Immune system disorder [Unknown]
  - Hospitalisation [None]
  - Infection [Unknown]
  - Drug interaction [None]
  - Illness [Recovering/Resolving]
  - Fall [Unknown]
  - Stress [Unknown]

NARRATIVE: CASE EVENT DATE: 20250601
